FAERS Safety Report 15120294 (Version 2)
Quarter: 2019Q3

REPORT INFORMATION
  Report Type: Spontaneous
  Country: DE (occurrence: DE)
  Receive Date: 20180709
  Receipt Date: 20190710
  Transmission Date: 20191004
  Serious: Yes (Hospitalization)
  Sender: FDA-Public Use
  Company Number: DE-TORRENT-00008755

PATIENT
  Age: 78 Year
  Sex: Male

DRUGS (11)
  1. ROPINIROL [Suspect]
     Active Substance: ROPINIROLE
     Indication: PARKINSON^S DISEASE
     Dosage: 6 MILLIGRAM DAILY;
     Route: 065
  2. ATORVASTATIN [Concomitant]
     Active Substance: ATORVASTATIN
     Indication: CORONARY ARTERY DISEASE
     Dosage: 40 MILLIGRAM DAILY;
  3. RASAGILIN [Suspect]
     Active Substance: RASAGILINE MESYLATE
     Indication: PARKINSON^S DISEASE
     Dosage: 1 MILLIGRAM DAILY;
     Route: 065
  4. TROSPIUM CHLORIDE. [Suspect]
     Active Substance: TROSPIUM CHLORIDE
     Indication: MICTURITION DISORDER
     Dosage: UNKNOWN
     Route: 065
  5. ACETYLSALICYLIC ACID [Concomitant]
     Active Substance: ASPIRIN
     Indication: CORONARY ARTERY DISEASE
     Dosage: 100 MILLIGRAM DAILY;
  6. LEVODOPA [Suspect]
     Active Substance: LEVODOPA
     Indication: PARKINSON^S DISEASE
  7. L-DOPA/ ENTACAPON [Suspect]
     Active Substance: CARBIDOPA\ENTACAPONE\LEVODOPA
     Indication: PRODUCT USED FOR UNKNOWN INDICATION
     Dosage: 600 MILLIGRAM DAILY;
     Route: 065
  8. ENTACAPONE. [Suspect]
     Active Substance: ENTACAPONE
     Indication: PARKINSON^S DISEASE
     Dosage: UNKNOWN, UNK, QD
  9. PAROXETIN [Concomitant]
     Active Substance: PAROXETINE HYDROCHLORIDE
     Indication: ANXIETY
     Dosage: UNKNOWN
  10. AMANTADIN [Suspect]
     Active Substance: AMANTADINE
     Indication: PARKINSON^S DISEASE
     Dosage: 200 MILLIGRAM, DAILY
     Route: 065
  11. PRAMIPEXOL [Suspect]
     Active Substance: PRAMIPEXOLE
     Indication: PARKINSON^S DISEASE
     Dosage: 1.05 MILLIGRAM DAILY;
     Route: 065

REACTIONS (27)
  - Anticholinergic syndrome [Recovering/Resolving]
  - Fall [Recovering/Resolving]
  - Sleep disorder [Recovering/Resolving]
  - Fatigue [Recovering/Resolving]
  - Therapeutic product effect variable [Recovering/Resolving]
  - Constipation [Recovering/Resolving]
  - Parkinson^s disease [Recovering/Resolving]
  - Urinary retention [Recovering/Resolving]
  - White blood cell count increased [Recovering/Resolving]
  - Hyperkinesia [Recovering/Resolving]
  - Tachycardia [Recovering/Resolving]
  - Hyperthermia [Recovering/Resolving]
  - Dementia [Recovering/Resolving]
  - Thrombophlebitis [Recovering/Resolving]
  - General physical health deterioration [Recovering/Resolving]
  - Dysphonia [Recovering/Resolving]
  - Micturition disorder [Recovering/Resolving]
  - Hyponatraemia [Recovering/Resolving]
  - Freezing phenomenon [Recovering/Resolving]
  - Troponin increased [Recovering/Resolving]
  - Confusional state [Recovering/Resolving]
  - Mydriasis [Recovering/Resolving]
  - Disturbance in attention [Recovering/Resolving]
  - Asthenia [Recovering/Resolving]
  - Blood creatinine increased [Recovering/Resolving]
  - Nocturia [Recovering/Resolving]
  - Blood creatine phosphokinase increased [Recovering/Resolving]
